FAERS Safety Report 6818126-1 (Version None)
Quarter: 2010Q3

REPORT INFORMATION
  Report Type: 
  Country: None (occurrence: None)
  Receive Date: 20100706
  Receipt Date: 20100630
  Transmission Date: 20110219
  Serious: Yes (Death, Hospitalization, Other)
  Sender: FDA-Public Use
  Company Number: US-ROXANE LABORATORIES, INC.-2010-RO-00781RO

PATIENT
  Age: 64 Year
  Sex: Female

DRUGS (17)
  1. MYCOPHENOLATE MOFETIL [Suspect]
     Indication: IMMUNOSUPPRESSION
  2. FLUCONAZOLE [Suspect]
     Indication: CHEMICAL PERITONITIS
  3. FLUCONAZOLE [Suspect]
     Indication: OESOPHAGEAL CANDIDIASIS
  4. PIPERACILLIN AND TAZOBACTAM [Suspect]
     Indication: ANTIBIOTIC PROPHYLAXIS
  5. PIPERACILLIN AND TAZOBACTAM [Suspect]
  6. TACROLIMUS [Suspect]
     Indication: IMMUNOSUPPRESSION
  7. STEROID [Suspect]
     Indication: IMMUNOSUPPRESSION
  8. STEROID [Suspect]
     Indication: TRANSPLANT REJECTION
  9. CIPROFLOXACIN [Suspect]
     Indication: CHEMICAL PERITONITIS
  10. CIPROFLOXACIN [Suspect]
     Indication: URINARY TRACT INFECTION
  11. VANCOMYCIN [Suspect]
     Indication: CHEMICAL PERITONITIS
  12. TRIMETHOPRIM [Suspect]
     Indication: ANTIFUNGAL PROPHYLAXIS
  13. SULFAMETHOXAZOLE [Suspect]
     Indication: ANTIFUNGAL PROPHYLAXIS
  14. GANCICLOVIR [Suspect]
     Indication: CYTOMEGALOVIRUS INFECTION
  15. CLINDAMYCIN [Suspect]
     Indication: LACTOBACILLUS INFECTION
  16. LINEZOLID [Suspect]
     Indication: URINARY TRACT INFECTION
  17. LINEZOLID [Suspect]
     Indication: ENTEROCOCCUS TEST POSITIVE

REACTIONS (17)
  - BACTERIAL SEPSIS [None]
  - BILOMA [None]
  - CHEMICAL PERITONITIS [None]
  - CYTOMEGALOVIRUS INFECTION [None]
  - DEHYDRATION [None]
  - FAILURE TO THRIVE [None]
  - INTESTINAL OBSTRUCTION [None]
  - LEUKOCYTOSIS [None]
  - MALNUTRITION [None]
  - MULTI-ORGAN FAILURE [None]
  - OESOPHAGEAL CANDIDIASIS [None]
  - PAIN [None]
  - POST PROCEDURAL BILE LEAK [None]
  - SPLENIC INFARCTION [None]
  - TRANSPLANT REJECTION [None]
  - URINARY TRACT INFECTION [None]
  - WOUND INFECTION [None]
